FAERS Safety Report 14938957 (Version 1)
Quarter: 2018Q2

REPORT INFORMATION
  Report Type: Spontaneous
  Country: CH (occurrence: CH)
  Receive Date: 20180525
  Receipt Date: 20180525
  Transmission Date: 20180711
  Serious: Yes (Disabling, Other)
  Sender: FDA-Public Use
  Company Number: CH-ENDO PHARMACEUTICALS INC-2018-037800

PATIENT
  Age: 51 Year

DRUGS (1)
  1. XIAPEX [Suspect]
     Active Substance: COLLAGENASE CLOSTRIDIUM HISTOLYTICUM
     Indication: DUPUYTREN^S CONTRACTURE
     Dosage: UNK UNKNOWN, UNKNOWN
     Route: 026
     Dates: start: 20141215

REACTIONS (2)
  - Arthralgia [Unknown]
  - Periarthritis [Recovered/Resolved]

NARRATIVE: CASE EVENT DATE: 20141219
